FAERS Safety Report 16337511 (Version 1)
Quarter: 2019Q2

REPORT INFORMATION
  Report Type: Spontaneous
  Country: US (occurrence: US)
  Receive Date: 20190416
  Receipt Date: 20190416
  Transmission Date: 20190711
  Serious: Yes (Other)
  Sender: FDA-Public Use
  Company Number: None

PATIENT
  Age: 3 Year
  Sex: Female
  Weight: 75.75 kg

DRUGS (1)
  1. ESTRADIOL. [Suspect]
     Active Substance: ESTRADIOL

REACTIONS (7)
  - Chest pain [None]
  - Muscle spasms [None]
  - Drug ineffective [None]
  - Infection [None]
  - Weight increased [None]
  - Product substitution issue [None]
  - Device failure [None]
